FAERS Safety Report 6669971-7 (Version None)
Quarter: 2010Q2

REPORT INFORMATION
  Report Type: 
  Country: None (occurrence: None)
  Receive Date: 20100406
  Receipt Date: 20100125
  Transmission Date: 20101027
  Serious: No
  Sender: FDA-Public Use
  Company Number: US-ALLERGAN-1000941US

PATIENT
  Sex: Female

DRUGS (5)
  1. LATISSE [Suspect]
     Indication: GROWTH OF EYELASHES
     Dosage: 1 GTT, QHS
     Route: 061
  2. LATISSE [Suspect]
     Dosage: UNK
  3. SYNTHROID [Concomitant]
  4. ESTROGEN NOS [Concomitant]
  5. VITAMINS NOS [Concomitant]

REACTIONS (2)
  - MADAROSIS [None]
  - TRICHORRHEXIS [None]
